FAERS Safety Report 15275440 (Version 10)
Quarter: 2021Q3

REPORT INFORMATION
  Report Type: Other
  Country: CA (occurrence: CA)
  Receive Date: 20180814
  Receipt Date: 20210729
  Transmission Date: 20211014
  Serious: Yes (Hospitalization)
  Sender: FDA-Public Use
  Company Number: CA-ROCHE-2098198

PATIENT
  Age: 51 Year
  Sex: Female

DRUGS (13)
  1. DIPHENHYDRAMINE. [Concomitant]
     Active Substance: DIPHENHYDRAMINE
     Indication: PREMEDICATION
     Dosage: 30?60 MIN PRIOR TO EACH INFUSION (REQUIRED)
     Route: 048
  2. AMLODIPINE [Concomitant]
     Active Substance: AMLODIPINE BESYLATE
     Indication: BLOOD PRESSURE MEASUREMENT
  3. PREMARIN [Concomitant]
     Active Substance: ESTROGENS, CONJUGATED
     Dosage: SINCE 3 YEARS
  4. VITAMIN C [Concomitant]
     Active Substance: ASCORBIC ACID
  5. OCREVUS [Suspect]
     Active Substance: OCRELIZUMAB
     Indication: RELAPSING-REMITTING MULTIPLE SCLEROSIS
     Dosage: 600 MG IV EVERY 6 MONTH
     Route: 042
     Dates: start: 20180322
  6. VAGIFEM [Concomitant]
     Active Substance: ESTRADIOL
  7. TAMSULOSIN [Concomitant]
     Active Substance: TAMSULOSIN
  8. METHYLPREDNISOLONE. [Concomitant]
     Active Substance: METHYLPREDNISOLONE
     Indication: PREMEDICATION
     Dosage: APPROXIMATELY 30 MIN PRIOR TO EACH INFUSION?REACTION: INCREASE IN ENERGY
     Route: 042
  9. FELODIPINE. [Concomitant]
     Active Substance: FELODIPINE
     Indication: HYPERTENSION
  10. ACETAMINOPHEN. [Concomitant]
     Active Substance: ACETAMINOPHEN
     Indication: PREMEDICATION
     Dosage: 30?60 MIN PRIOR TO EACH INFUSIONS
     Route: 048
  11. GABAPENTIN. [Concomitant]
     Active Substance: GABAPENTIN
  12. BILAXTEN [Concomitant]
     Active Substance: BILASTINE
     Indication: HYPERSENSITIVITY
  13. OCREVUS [Suspect]
     Active Substance: OCRELIZUMAB
     Route: 042
     Dates: start: 201804

REACTIONS (22)
  - Excessive eye blinking [Not Recovered/Not Resolved]
  - Peripheral swelling [Recovered/Resolved]
  - Alopecia [Recovered/Resolved]
  - Cholelithiasis [Not Recovered/Not Resolved]
  - Dyspepsia [Recovered/Resolved]
  - Skin burning sensation [Recovered/Resolved]
  - Dyspepsia [Recovering/Resolving]
  - Menopause [Unknown]
  - Hot flush [Recovered/Resolved]
  - Diarrhoea [Recovered/Resolved]
  - Pain in extremity [Recovered/Resolved]
  - Infusion related reaction [Recovered/Resolved]
  - Insomnia [Recovered/Resolved]
  - Neuralgia [Recovered/Resolved]
  - Infusion related reaction [Recovered/Resolved]
  - Insomnia [Recovered/Resolved]
  - Fatigue [Not Recovered/Not Resolved]
  - Hypertension [Recovered/Resolved]
  - Lacrimation increased [Recovered/Resolved]
  - Myalgia [Not Recovered/Not Resolved]
  - Insomnia [Not Recovered/Not Resolved]
  - Depression [Recovered/Resolved]

NARRATIVE: CASE EVENT DATE: 20180322
